FAERS Safety Report 8444406-2 (Version None)
Quarter: 2012Q2

REPORT INFORMATION
  Report Type: 
  Country: None (occurrence: None)
  Receive Date: 20120618
  Receipt Date: 20120612
  Transmission Date: 20120825
  Serious: Yes (Death, Hospitalization)
  Sender: FDA-Public Use
  Company Number: IT-ELI_LILLY_AND_COMPANY-IT201206004248

PATIENT
  Sex: Female

DRUGS (4)
  1. GEMZAR [Suspect]
     Indication: LUNG ADENOCARCINOMA STAGE III
     Dosage: 1626 MG, UNK
     Route: 042
     Dates: start: 20120502, end: 20120502
  2. CISPLATIN [Concomitant]
     Indication: LUNG ADENOCARCINOMA STAGE III
     Dosage: 65.04 MG, UNK
     Route: 042
     Dates: start: 20120502, end: 20120503
  3. TAPENTADOL [Concomitant]
     Indication: PAIN
     Dosage: 100 MG, UNK
     Route: 048
     Dates: start: 20120423, end: 20120506
  4. ACETYLCARNITINE [Concomitant]
     Indication: MEDICAL DIET
     Dosage: 1 G, TID
     Route: 048
     Dates: start: 20120502, end: 20120506

REACTIONS (3)
  - RESPIRATORY FAILURE [None]
  - VOMITING [None]
  - DEATH [None]
